FAERS Safety Report 9677836 (Version 7)
Quarter: 2014Q2

REPORT INFORMATION
  Report Type: Report from Study
  Country: DE (occurrence: DE)
  Receive Date: 20131108
  Receipt Date: 20140416
  Transmission Date: 20141212
  Serious: Yes (Hospitalization)
  Sender: FDA-Public Use
  Company Number: DE-ROCHE-1284008

PATIENT
  Age: 70 Year
  Sex: Male
  Weight: 95 kg

DRUGS (28)
  1. RITUXIMAB [Suspect]
     Indication: B-CELL LYMPHOMA
     Dosage: LAST DOSE PRIOR TO SAE ON 12/SEP/2013.
     Route: 042
     Dates: start: 20130912
  2. CYCLOPHOSPHAMIDE [Suspect]
     Indication: B-CELL LYMPHOMA
     Route: 065
  3. DOXORUBICIN [Suspect]
     Indication: B-CELL LYMPHOMA
     Route: 065
  4. VINCRISTINE [Suspect]
     Indication: B-CELL LYMPHOMA
     Route: 065
  5. PREDNISONE [Suspect]
     Indication: B-CELL LYMPHOMA
     Route: 065
  6. OMEPRAZOL [Concomitant]
     Indication: PROPHYLAXIS
     Route: 048
     Dates: start: 20130904, end: 20130916
  7. PREDNISOLON [Concomitant]
     Indication: BLOOD LACTATE DEHYDROGENASE
     Route: 048
     Dates: start: 20130909, end: 20130914
  8. PREDNISOLON [Concomitant]
     Route: 048
     Dates: start: 20131106, end: 20131110
  9. PREDNISOLON [Concomitant]
     Route: 048
     Dates: start: 20131127, end: 20131201
  10. PREDNISOLON [Concomitant]
     Route: 048
     Dates: start: 20131219, end: 20131223
  11. PREDNISOLON [Concomitant]
     Route: 048
     Dates: start: 20140109, end: 20140113
  12. PREDNISOLON [Concomitant]
     Route: 048
     Dates: start: 20140221, end: 20140225
  13. ZYLORIC [Concomitant]
     Indication: HYPERURICAEMIA
     Route: 048
     Dates: start: 20130910, end: 20130916
  14. HERBAL,HOMEOPATHIC,+ DIETARY SUPPLEMENTS/PHENYL SALICYLATE [Concomitant]
     Indication: MUCOSAL INFLAMMATION
     Dosage: 20 DROP
     Route: 050
     Dates: start: 20130911, end: 20130916
  15. AMPHO-MORONAL [Concomitant]
     Indication: MUCOSAL INFLAMMATION
     Route: 060
     Dates: start: 20130911, end: 20130916
  16. AMPHO-MORONAL [Concomitant]
     Route: 060
     Dates: start: 20130928, end: 20131018
  17. LASIX [Concomitant]
     Indication: OEDEMA
     Route: 042
     Dates: start: 20130914, end: 20130914
  18. STAURODORM [Concomitant]
     Indication: INSOMNIA
     Route: 048
     Dates: start: 20130907, end: 20130914
  19. ALLOPURINOL [Concomitant]
     Route: 048
     Dates: start: 20131011
  20. PANTOZOL (GERMANY) [Concomitant]
     Route: 048
     Dates: start: 20131017
  21. ZOFRAN [Concomitant]
     Indication: PREMEDICATION
     Dosage: NEXT THERPIES ON 19/DEC/2013, 30/JAN/2014, 21/FEB/2014, 09/JAN/2014
     Route: 042
     Dates: start: 20131127, end: 20131127
  22. UROMITEXAN [Concomitant]
     Indication: PREMEDICATION
     Dosage: NEXT DOSAGE ON 19/DEC/2013, 30/JAN/2014, 21/FEB/2014, 09/JAN/2014
     Route: 042
     Dates: start: 20131219, end: 20131219
  23. UROMITEXAN [Concomitant]
     Dosage: 09/JAN/2014
     Route: 048
     Dates: start: 20140221, end: 20140221
  24. FILGRASTIM [Concomitant]
     Indication: LYMPHOCYTE COUNT DECREASED
     Route: 058
     Dates: start: 20131221, end: 20131222
  25. OXAZEPAM [Concomitant]
     Indication: INSOMNIA
     Route: 048
     Dates: start: 20131211, end: 20131212
  26. TAVEGIL [Concomitant]
     Indication: PREMEDICATION
     Route: 042
     Dates: start: 20140108, end: 20140108
  27. ZOPICLONA [Concomitant]
     Indication: INSOMNIA
     Route: 048
     Dates: start: 20140325
  28. AMPHO-MORONAL LUTSCHTABLETTEN [Concomitant]
     Indication: MUCOSAL INFLAMMATION
     Route: 060
     Dates: start: 20140325, end: 20140326

REACTIONS (2)
  - Gout [Recovered/Resolved]
  - Fall [Unknown]
